FAERS Safety Report 6454958-X (Version None)
Quarter: 2009Q4

REPORT INFORMATION
  Report Type: 
  Country: None (occurrence: None)
  Receive Date: 20091124
  Receipt Date: 20091113
  Transmission Date: 20100525
  Serious: No
  Sender: FDA-Public Use
  Company Number: FI-ELI_LILLY_AND_COMPANY-FI200911003401

PATIENT
  Age: 62 Year
  Sex: Female

DRUGS (4)
  1. CYMBALTA [Suspect]
     Indication: PAIN
     Dosage: 30 MG, DAILY (1/D)
     Route: 048
     Dates: start: 20090825, end: 20091016
  2. SIMVASTATIN [Concomitant]
     Indication: BLOOD CHOLESTEROL
     Dosage: 40 MG, UNK
  3. KERLON [Concomitant]
     Dosage: 10 MG, UNK
  4. NORVASC [Concomitant]
     Dosage: 5 MG, UNK

REACTIONS (4)
  - ALANINE AMINOTRANSFERASE INCREASED [None]
  - GAMMA-GLUTAMYLTRANSFERASE INCREASED [None]
  - OFF LABEL USE [None]
  - PRURITUS [None]
